FAERS Safety Report 13562514 (Version 4)
Quarter: 2018Q4

REPORT INFORMATION
  Report Type: Spontaneous
  Country: US (occurrence: US)
  Receive Date: 20170516
  Receipt Date: 20181210
  Transmission Date: 20190204
  Serious: No
  Sender: FDA-Public Use
  Company Number: US-PFIZER INC-2017210790

PATIENT
  Age: 66 Year
  Sex: Female

DRUGS (3)
  1. FLECTOR [DICLOFENAC SODIUM] [Concomitant]
     Active Substance: DICLOFENAC SODIUM
     Indication: MYALGIA
     Dosage: 1 DF, 2X/DAY
     Route: 062
  2. LYRICA [Suspect]
     Active Substance: PREGABALIN
     Indication: PAIN
     Dosage: 50 MG, AS NEEDED, (BID )
  3. LYRICA [Suspect]
     Active Substance: PREGABALIN
     Indication: FIBROMYALGIA
     Dosage: 25 MG, AS NEEDED, (FOUR TIMES/DAY )

REACTIONS (6)
  - Fall [Unknown]
  - Pain [Unknown]
  - Gait disturbance [Unknown]
  - Product use issue [Unknown]
  - Peripheral swelling [Unknown]
  - Nail disorder [Unknown]

NARRATIVE: CASE EVENT DATE: 201704
